FAERS Safety Report 24358768 (Version 1)
Quarter: 2024Q3

REPORT INFORMATION
  Report Type: Spontaneous
  Country: US (occurrence: None)
  Receive Date: 20240924
  Receipt Date: 20240924
  Transmission Date: 20241017
  Serious: Yes (unspecified)
  Sender: Public
  Company Number: None

PATIENT
  Age: 62 Year
  Sex: Female
  Weight: 138.6 kg

DRUGS (3)
  1. AMBRISENTAN [Suspect]
     Active Substance: AMBRISENTAN
     Indication: Pulmonary hypertension
     Dosage: DAILY ORAL
     Route: 048
     Dates: start: 20240910, end: 20240923
  2. METOLAZONE [Suspect]
     Active Substance: METOLAZONE
  3. BUMEX [Suspect]
     Active Substance: BUMETANIDE

REACTIONS (4)
  - Weight increased [None]
  - Oedema [None]
  - Rash erythematous [None]
  - Rash pruritic [None]

NARRATIVE: CASE EVENT DATE: 20240920
